FAERS Safety Report 25374058 (Version 4)
Quarter: 2025Q2

REPORT INFORMATION
  Report Type: Spontaneous
  Country: FR (occurrence: FR)
  Receive Date: 20250529
  Receipt Date: 20250605
  Transmission Date: 20250716
  Serious: Yes (Life-Threatening, Other)
  Sender: PFIZER
  Company Number: FR-PFIZER INC-PV202500063174

PATIENT
  Age: 58 Year
  Sex: Female

DRUGS (12)
  1. METHYLPREDNISOLONE SODIUM SUCCINATE [Suspect]
     Active Substance: METHYLPREDNISOLONE SODIUM SUCCINATE
     Indication: Chemotherapy side effect prophylaxis
     Dates: start: 202311, end: 202312
  2. OXALIPLATIN [Suspect]
     Active Substance: OXALIPLATIN
     Indication: Adenocarcinoma of colon
     Dates: start: 201302, end: 201306
  3. OXALIPLATIN [Suspect]
     Active Substance: OXALIPLATIN
     Indication: Adenocarcinoma
     Dates: start: 202311, end: 202312
  4. OXALIPLATIN [Suspect]
     Active Substance: OXALIPLATIN
     Indication: Metastases to lymph nodes
  5. OXALIPLATIN [Suspect]
     Active Substance: OXALIPLATIN
     Indication: Metastases to liver
  6. FLUOROURACIL [Concomitant]
     Active Substance: FLUOROURACIL
     Indication: Adenocarcinoma of colon
     Dates: start: 202311
  7. FLUOROURACIL [Concomitant]
     Active Substance: FLUOROURACIL
     Indication: Metastases to lymph nodes
  8. FLUOROURACIL [Concomitant]
     Active Substance: FLUOROURACIL
     Indication: Metastases to liver
  9. ERBITUX [Concomitant]
     Active Substance: CETUXIMAB
     Indication: Adenocarcinoma of colon
     Dates: start: 202311
  10. ERBITUX [Concomitant]
     Active Substance: CETUXIMAB
     Indication: Metastases to lymph nodes
  11. ERBITUX [Concomitant]
     Active Substance: CETUXIMAB
     Indication: Metastases to liver
  12. ONDANSETRON [Concomitant]
     Active Substance: ONDANSETRON
     Indication: Premedication
     Dates: start: 202311

REACTIONS (1)
  - Immune thrombocytopenia [Recovered/Resolved]

NARRATIVE: CASE EVENT DATE: 20231201
